FAERS Safety Report 12466667 (Version 1)
Quarter: 2016Q2

REPORT INFORMATION
  Report Type: Other
  Country: US (occurrence: US)
  Receive Date: 20160615
  Receipt Date: 20160615
  Transmission Date: 20160815
  Serious: No
  Sender: FDA-Public Use
  Company Number: US-GLENMARK PHARMACEUTICALS INC, USA.-2016GMK022240

PATIENT

DRUGS (4)
  1. DESMOPRESSIN ACETATE TABLETS [Suspect]
     Active Substance: DESMOPRESSIN ACETATE
     Indication: HYPOPITUITARISM
     Dosage: 2 DF, OD
     Route: 065
     Dates: start: 1994
  2. LAMOTRIGINE. [Concomitant]
     Active Substance: LAMOTRIGINE
     Indication: EPILEPSY
     Dosage: 1 TABLET IN THE MORNING AND 1.5 TABLETS AT NIGHT
     Route: 048
     Dates: start: 2010
  3. HYDROCORTISONE. [Concomitant]
     Active Substance: HYDROCORTISONE
     Indication: HYPOPITUITARISM
     Dosage: 1.5 DOSE IN THE MORNING AND 0.5 DOSE AT NOON AND 1 TABLET AT 3 PM
     Route: 048
     Dates: start: 1994
  4. LEVOTHYROXINE. [Concomitant]
     Active Substance: LEVOTHYROXINE
     Indication: HYPOPITUITARISM
     Dosage: QD
     Route: 048
     Dates: start: 1994

REACTIONS (3)
  - Extra dose administered [Unknown]
  - Drug ineffective for unapproved indication [Unknown]
  - Product substitution issue [None]
